FAERS Safety Report 4947067-X (Version None)
Quarter: 2006Q1

REPORT INFORMATION
  Report Type: 
  Country: None (occurrence: None)
  Receive Date: 20060131
  Receipt Date: 20051128
  Transmission Date: 20060701
  Serious: No
  Sender: FDA-Public Use
  Company Number: 200520156US

PATIENT
  Sex: Male

DRUGS (1)
  1. KETEK [Suspect]
     Indication: OSTEOMYELITIS
     Dosage: 800 MG QD PO
     Route: 048

REACTIONS (1)
  - DYSGEUSIA [None]
